FAERS Safety Report 25395313 (Version 1)
Quarter: 2025Q2

REPORT INFORMATION
  Report Type: Spontaneous
  Country: SA (occurrence: SA)
  Receive Date: 20250604
  Receipt Date: 20250604
  Transmission Date: 20250717
  Serious: Yes (Other)
  Sender: PFIZER
  Company Number: SA-PFIZER INC-PV202500066137

PATIENT
  Age: 59 Year
  Sex: Female

DRUGS (1)
  1. INFLIXIMAB [Suspect]
     Active Substance: INFLIXIMAB
     Indication: Crohn^s disease

REACTIONS (2)
  - Bronchiectasis [Unknown]
  - Pneumonia [Unknown]
